FAERS Safety Report 19882425 (Version 1)
Quarter: 2021Q3

REPORT INFORMATION
  Report Type: Spontaneous
  Country: BR (occurrence: BR)
  Receive Date: 20210925
  Receipt Date: 20210925
  Transmission Date: 20211014
  Serious: Yes (Hospitalization)
  Sender: FDA-Public Use
  Company Number: BR-AMGEN-BRASP2021145392

PATIENT
  Sex: Male

DRUGS (2)
  1. BLINCYTO [Suspect]
     Active Substance: BLINATUMOMAB
     Indication: PRODUCT USED FOR UNKNOWN INDICATION
     Dosage: UNK
     Route: 065
     Dates: start: 2019, end: 202109
  2. BLINCYTO [Suspect]
     Active Substance: BLINATUMOMAB
     Dosage: UNK (LOWEST DOSE)
     Route: 065
     Dates: start: 202109

REACTIONS (5)
  - Gait disturbance [Unknown]
  - Aphasia [Unknown]
  - Device leakage [Unknown]
  - Tremor [Unknown]
  - Neurotoxicity [Unknown]

NARRATIVE: CASE EVENT DATE: 202109
